FAERS Safety Report 26049006 (Version 1)
Quarter: 2025Q4

REPORT INFORMATION
  Report Type: Spontaneous
  Country: EU (occurrence: EU)
  Receive Date: 20251115
  Receipt Date: 20251115
  Transmission Date: 20260117
  Serious: Yes (Other)
  Sender: AUROBINDO
  Company Number: EU-AFSSAPS-RN2025001046

PATIENT
  Age: 40 Year
  Sex: Female

DRUGS (3)
  1. CLOZAPINE [Suspect]
     Active Substance: CLOZAPINE
     Indication: Schizophrenia
     Dosage: 150 MILLIGRAM, ONCE A DAY (1.5 CP DE 100 MG/J AU COUCHER)
     Route: 048
     Dates: start: 202301
  2. LORAZEPAM [Suspect]
     Active Substance: LORAZEPAM
     Indication: Schizophrenia
     Dosage: 7.5 MILLIGRAM, ONCE A DAY (2.5 MG LE MIDI, LE SOIR ET AU COUCHER)
     Route: 048
     Dates: start: 202301
  3. TERALITHE [Suspect]
     Active Substance: LITHIUM CARBONATE
     Indication: Schizophrenia
     Dosage: 800 MILLIGRAM, ONCE A DAY (800 MG LE SOIR)
     Route: 048
     Dates: start: 202301

REACTIONS (2)
  - Foetal death [Recovered/Resolved with Sequelae]
  - Maternal exposure during pregnancy [Recovered/Resolved]

NARRATIVE: CASE EVENT DATE: 20250911
